FAERS Safety Report 12995648 (Version 4)
Quarter: 2017Q3

REPORT INFORMATION
  Report Type: Spontaneous
  Country: US (occurrence: US)
  Receive Date: 20161202
  Receipt Date: 20170828
  Transmission Date: 20171127
  Serious: No
  Sender: FDA-Public Use
  Company Number: US-GLAXOSMITHKLINE-US2016178125

PATIENT
  Age: 50 Year
  Sex: Female

DRUGS (1)
  1. NUCALA [Suspect]
     Active Substance: MEPOLIZUMAB
     Indication: ASTHMA
     Dosage: 100 MG, U
     Route: 042
     Dates: start: 20161130

REACTIONS (5)
  - Drug dose omission [Unknown]
  - Needle issue [Unknown]
  - Underdose [Unknown]
  - Drug ineffective [Unknown]
  - Syringe issue [Unknown]

NARRATIVE: CASE EVENT DATE: 20161130
